FAERS Safety Report 11080764 (Version 2)
Quarter: 2015Q2

REPORT INFORMATION
  Report Type: Spontaneous
  Country: FR (occurrence: FR)
  Receive Date: 20150501
  Receipt Date: 20150508
  Transmission Date: 20150821
  Serious: Yes (Hospitalization, Other)
  Sender: FDA-Public Use
  Company Number: FR-AMGEN-FRASP2015042093

PATIENT
  Age: 62 Year
  Sex: Female

DRUGS (4)
  1. MABTHERA [Suspect]
     Active Substance: RITUXIMAB
     Indication: PRODUCT USED FOR UNKNOWN INDICATION
     Dosage: FIRST COURSE
     Route: 065
     Dates: start: 20140710
  2. ENBREL [Suspect]
     Active Substance: ETANERCEPT
     Indication: PRODUCT USED FOR UNKNOWN INDICATION
     Dosage: 1 DF, CYCLIC
     Route: 058
     Dates: start: 2002, end: 2007
  3. MABTHERA [Suspect]
     Active Substance: RITUXIMAB
     Dosage: SECOND COURSE
     Route: 065
     Dates: start: 201501
  4. NOVATREX (METHOTREXATE) [Suspect]
     Active Substance: METHOTREXATE SODIUM
     Indication: PRODUCT USED FOR UNKNOWN INDICATION
     Dosage: 8 DF, WEEKLY
     Route: 048
     Dates: start: 2002

REACTIONS (5)
  - Breast cancer [Unknown]
  - Pleural disorder [Unknown]
  - Lymphadenopathy mediastinal [Unknown]
  - Cough [Unknown]
  - Dyspnoea [Unknown]

NARRATIVE: CASE EVENT DATE: 2008
